FAERS Safety Report 18395293 (Version 1)
Quarter: 2020Q4

REPORT INFORMATION
  Report Type: Other
  Country: US (occurrence: US)
  Receive Date: 20201017
  Receipt Date: 20201017
  Transmission Date: 20210114
  Serious: Yes (Other)
  Sender: FDA-Public Use
  Company Number: US-ROCHE-2696293

PATIENT
  Sex: Female

DRUGS (6)
  1. RITUXAN [Suspect]
     Active Substance: RITUXIMAB
     Route: 065
     Dates: start: 20181121
  2. RITUXAN [Suspect]
     Active Substance: RITUXIMAB
     Indication: B-CELL LYMPHOMA
     Dosage: 16/JAN/2019, 10/APR/2019, 08/MAY/2019, 13/MAR/2019
     Route: 065
     Dates: start: 20180116
  3. RITUXAN [Suspect]
     Active Substance: RITUXIMAB
     Route: 065
     Dates: start: 20190213
  4. RITUXAN [Suspect]
     Active Substance: RITUXIMAB
     Dosage: 700MG AND 200MG
     Route: 065
     Dates: start: 20181219
  5. VENCLEXTA [Suspect]
     Active Substance: VENETOCLAX
     Indication: B-CELL LYMPHOMA
     Dosage: TAKE 1 TABLET BY MOUTH FOR 2 WEEK(S) THEN TAKE 2 WEEKS OFF, REPEAT THE CYCLE
     Route: 048
  6. RITUXAN [Suspect]
     Active Substance: RITUXIMAB
     Route: 065
     Dates: start: 20180213

REACTIONS (1)
  - Recurrent cancer [Unknown]
